FAERS Safety Report 7455865-6 (Version None)
Quarter: 2011Q2

REPORT INFORMATION
  Report Type: 
  Country: None (occurrence: None)
  Receive Date: 20110503
  Receipt Date: 20110426
  Transmission Date: 20111010
  Serious: Yes (Death, Hospitalization)
  Sender: FDA-Public Use
  Company Number: A0914725A

PATIENT
  Age: 51 Year
  Sex: Male
  Weight: 68 kg

DRUGS (7)
  1. FLOLAN [Suspect]
     Indication: PULMONARY ARTERIAL HYPERTENSION
     Route: 065
     Dates: start: 20101210, end: 20110101
  2. FISH OIL [Concomitant]
  3. PRAVACHOL [Concomitant]
  4. ASPIRIN [Concomitant]
  5. GLUCOSAMINE [Concomitant]
  6. REVATIO [Concomitant]
  7. ACETAMINOPHEN [Concomitant]

REACTIONS (3)
  - OXYGEN SATURATION DECREASED [None]
  - ILL-DEFINED DISORDER [None]
  - DEATH [None]
